FAERS Safety Report 11781132 (Version 1)
Quarter: 2015Q4

REPORT INFORMATION
  Report Type: Spontaneous
  Country: US (occurrence: US)
  Receive Date: 20151126
  Receipt Date: 20151126
  Transmission Date: 20160305
  Serious: No
  Sender: FDA-Public Use
  Company Number: US-BIOGENIDEC-2015BI155639

PATIENT
  Sex: Female

DRUGS (7)
  1. NATOPALAR (NOS) [Concomitant]
  2. AMITRIPTYLINE [Concomitant]
     Active Substance: AMITRIPTYLINE
  3. AVONEX [Suspect]
     Active Substance: INTERFERON BETA-1A
     Indication: MULTIPLE SCLEROSIS
     Route: 030
     Dates: start: 20140724
  4. ALBUTEROL. [Concomitant]
     Active Substance: ALBUTEROL
  5. CLARITIN [Concomitant]
     Active Substance: LORATADINE
  6. FLOVENT [Concomitant]
     Active Substance: FLUTICASONE PROPIONATE
  7. POTASSIUM [Concomitant]
     Active Substance: POTASSIUM

REACTIONS (4)
  - Drug-induced liver injury [Unknown]
  - Blister [Recovered/Resolved]
  - Vaccination site abscess [Recovered/Resolved]
  - Drug hypersensitivity [Recovered/Resolved]
